FAERS Safety Report 4684413-9 (Version None)
Quarter: 2005Q2

REPORT INFORMATION
  Report Type: 
  Country: None (occurrence: None)
  Receive Date: 20050531
  Receipt Date: 20041021
  Transmission Date: 20051028
  Serious: Yes (Other)
  Sender: FDA-Public Use
  Company Number: USA040773964

PATIENT
  Age: 31 Year
  Sex: Female
  Weight: 117 kg

DRUGS (5)
  1. ZYPREXA [Suspect]
     Indication: SCHIZOPHRENIA
     Dosage: 15 MG DAY
     Dates: start: 20030701, end: 20041007
  2. GEODON [Concomitant]
  3. ATENOLOL [Concomitant]
  4. LITHIUM [Concomitant]
  5. AMANTADINE [Concomitant]

REACTIONS (1)
  - WEIGHT INCREASED [None]
